FAERS Safety Report 14319382 (Version 1)
Quarter: 2017Q4

REPORT INFORMATION
  Report Type: Spontaneous
  Country: US (occurrence: US)
  Receive Date: 20171221
  Receipt Date: 20171221
  Transmission Date: 20180321
  Serious: No
  Sender: FDA-Public Use
  Company Number: None

PATIENT
  Age: 66 Year
  Sex: Female

DRUGS (1)
  1. OTEZLA [Suspect]
     Active Substance: APREMILAST
     Indication: PSORIASIS
     Dosage: 30 MG 1 TABLET TWICE DAILY PO
     Route: 048
     Dates: start: 20170622, end: 20171220

REACTIONS (1)
  - Depression [None]

NARRATIVE: CASE EVENT DATE: 20171221
